FAERS Safety Report 17129120 (Version 1)
Quarter: 2019Q4

REPORT INFORMATION
  Report Type: Spontaneous
  Country: US (occurrence: US)
  Receive Date: 20191209
  Receipt Date: 20191209
  Transmission Date: 20200122
  Serious: No
  Sender: FDA-Public Use
  Company Number: US-BAUSCH-BL-2019-061526

PATIENT
  Sex: Female

DRUGS (2)
  1. JUBLIA [Suspect]
     Active Substance: EFINACONAZOLE
     Indication: PRODUCT USED FOR UNKNOWN INDICATION
     Dosage: ON 5 OF HER TOES
     Route: 061
     Dates: start: 2018
  2. JUBLIA [Suspect]
     Active Substance: EFINACONAZOLE
     Dosage: RE-STARTED
     Route: 061

REACTIONS (4)
  - Skin infection [Unknown]
  - Blister [Unknown]
  - Wound haemorrhage [Unknown]
  - Pruritus [Unknown]
